FAERS Safety Report 8460807-0 (Version None)
Quarter: 2012Q2

REPORT INFORMATION
  Report Type: 
  Country: None (occurrence: None)
  Receive Date: 20120624
  Receipt Date: 20120423
  Transmission Date: 20120825
  Serious: Yes (Hospitalization)
  Sender: FDA-Public Use
  Company Number: PHHY2008KR10320

PATIENT
  Sex: Male
  Weight: 87 kg

DRUGS (1)
  1. EXJADE [Suspect]
     Indication: IRON OVERLOAD
     Dosage: 20 MG/KG, UNK
     Route: 048
     Dates: start: 20080514, end: 20080609

REACTIONS (4)
  - INFECTION [None]
  - WHITE BLOOD CELL COUNT DECREASED [None]
  - GENERAL PHYSICAL CONDITION ABNORMAL [None]
  - DIARRHOEA [None]
